FAERS Safety Report 8850800 (Version 2)
Quarter: 2012Q4

REPORT INFORMATION
  Report Type: 
  Country: PT (occurrence: PT)
  Receive Date: 20121019
  Receipt Date: 20121207
  Transmission Date: 20130627
  Serious: Yes (Death)
  Sender: FDA-Public Use
  Company Number: PT-BRISTOL-MYERS SQUIBB COMPANY-17033523

PATIENT
  Age: 61 Year
  Sex: Male

DRUGS (1)
  1. YERVOY [Suspect]
     Dosage: 03Aug,24Aug,14Sep,9Oct,4 infusions

REACTIONS (1)
  - Malignant neoplasm progression [Fatal]
